FAERS Safety Report 4445838-X (Version None)
Quarter: 2004Q3

REPORT INFORMATION
  Report Type: 
  Country: None (occurrence: None)
  Receive Date: 20040908
  Receipt Date: 20040908
  Transmission Date: 20050211
  Serious: Yes (Hospitalization)
  Sender: FDA-Public Use
  Company Number: None

PATIENT
  Age: 66 Year
  Sex: Male

DRUGS (3)
  1. CYCLOPHOSPHAMIDE [Suspect]
     Indication: CARCINOMA
     Dosage: 1300 MG X 1
  2. DOXORUBICIN [Suspect]
     Dosage: 90 MG X1
  3. VINCRISTINE [Suspect]
     Dosage: 2 MG X 1

REACTIONS (1)
  - NEUTROPENIA [None]
